FAERS Safety Report 8864447 (Version 1)
Quarter: 2012Q4

REPORT INFORMATION
  Report Type: 
  Country: US (occurrence: US)
  Receive Date: 20121024
  Receipt Date: 20121024
  Transmission Date: 20130627
  Serious: No
  Sender: FDA-Public Use
  Company Number: US-AMGEN-USASP2011067501

PATIENT
  Age: 71 Year
  Sex: Male
  Weight: 81.63 kg

DRUGS (10)
  1. ENBREL [Suspect]
     Indication: PRODUCT USED FOR UNKNOWN INDICATION
     Dosage: 50 mg, qwk
     Route: 058
  2. JANUVIA [Concomitant]
     Dosage: 25 mg, UNK
     Route: 048
  3. ATENOLOL [Concomitant]
     Dosage: 50 mg, UNK
     Route: 048
  4. LISINOPRIL [Concomitant]
     Dosage: 30 mg, UNK
     Route: 048
  5. SIMVASTATIN [Concomitant]
     Dosage: 40 mg, UNK
  6. GLIMEPIRIDE [Concomitant]
     Dosage: 2 mg, UNK
  7. METFORMIN [Concomitant]
     Dosage: 500 mg, UNK
  8. DIGOXIN [Concomitant]
     Dosage: 0.125 mg, UNK
  9. ASA [Concomitant]
     Dosage: 325 mg, UNK
  10. HYDROCHLOROTHIAZIDE W/TRIAMTERENE [Concomitant]
     Dosage: UNK

REACTIONS (1)
  - Injection site haemorrhage [Unknown]
